FAERS Safety Report 6284544-6 (Version None)
Quarter: 2009Q3

REPORT INFORMATION
  Report Type: 
  Country: None (occurrence: None)
  Receive Date: 20090723
  Receipt Date: 20090715
  Transmission Date: 20100115
  Serious: Yes (Hospitalization)
  Sender: FDA-Public Use
  Company Number: 2009AL004636

PATIENT
  Age: 51 Year
  Sex: Male

DRUGS (11)
  1. DIGOXIN [Suspect]
     Dosage: .025 MG DAILY PO
     Route: 048
  2. AMIODARONE [Concomitant]
  3. ENALAPRIL MALEATE [Concomitant]
  4. TOPROL-XL [Concomitant]
  5. COUMADIN [Concomitant]
  6. ZESTORETIC NAPROXEN [Concomitant]
  7. COREG [Concomitant]
  8. ASPIRIN [Concomitant]
  9. CIALIS [Concomitant]
  10. LEXAPRO [Concomitant]
  11. METFORMIN [Concomitant]

REACTIONS (24)
  - ABDOMINAL DISCOMFORT [None]
  - ABDOMINAL DISTENSION [None]
  - ATRIAL FIBRILLATION [None]
  - BACK PAIN [None]
  - BLOOD PRESSURE INCREASED [None]
  - BRADYCARDIA [None]
  - CERUMEN IMPACTION [None]
  - CHEST DISCOMFORT [None]
  - CONTUSION [None]
  - COUGH [None]
  - DIABETES MELLITUS [None]
  - DIZZINESS [None]
  - DYSPNOEA EXERTIONAL [None]
  - EAR PAIN [None]
  - HEADACHE [None]
  - HEART RATE IRREGULAR [None]
  - INTERVERTEBRAL DISC PROTRUSION [None]
  - NASAL CONGESTION [None]
  - NASOPHARYNGITIS [None]
  - NAUSEA [None]
  - PULMONARY CONGESTION [None]
  - PYREXIA [None]
  - SINUS HEADACHE [None]
  - TINNITUS [None]
